FAERS Safety Report 5695308-6 (Version None)
Quarter: 2008Q2

REPORT INFORMATION
  Report Type: 
  Country: None (occurrence: None)
  Receive Date: 20080404
  Receipt Date: 20080327
  Transmission Date: 20081010
  Serious: Yes (Hospitalization)
  Sender: FDA-Public Use
  Company Number: FR-ABBOTT-08P-056-0444474-00

PATIENT
  Age: 52 Year
  Sex: Male

DRUGS (2)
  1. HUMIRA [Suspect]
     Indication: PSORIATIC ARTHROPATHY
     Route: 058
     Dates: start: 20070301, end: 20080126
  2. METHOTREXATE [Suspect]
     Indication: PSORIATIC ARTHROPATHY
     Route: 048
     Dates: start: 19990101, end: 20080126

REACTIONS (9)
  - BACK PAIN [None]
  - BOTULISM [None]
  - CRANIAL NERVE PARALYSIS [None]
  - ERECTILE DYSFUNCTION [None]
  - EYELID PTOSIS [None]
  - FACIAL PALSY [None]
  - HEMICEPHALALGIA [None]
  - HYPOREFLEXIA [None]
  - MYOKYMIA [None]
